FAERS Safety Report 8248807-7 (Version None)
Quarter: 2012Q2

REPORT INFORMATION
  Report Type: 
  Country: None (occurrence: None)
  Receive Date: 20120401
  Receipt Date: 20120323
  Transmission Date: 20120825
  Serious: Yes (Hospitalization)
  Sender: FDA-Public Use
  Company Number: PHHY2012IT025597

PATIENT
  Sex: Male

DRUGS (8)
  1. GABAPENTIN [Suspect]
     Dosage: 300 MG, DAILY
     Route: 048
     Dates: start: 20111001, end: 20111004
  2. LOSARTAN POTASSIUM [Concomitant]
     Dates: start: 20050107
  3. ALLOPURINOL [Concomitant]
     Dates: start: 20090411
  4. GABAPENTIN [Suspect]
     Dosage: UNK
     Dates: start: 20111005
  5. FLUTICASONE PROPIONATE/SALMETEROL [Concomitant]
     Dates: start: 20050321
  6. SPIRIVA [Concomitant]
     Dates: start: 20090617
  7. LASIX [Concomitant]
     Dates: start: 20050607
  8. LANSOPRAZOLE [Concomitant]
     Dates: start: 20080102

REACTIONS (4)
  - DIPLOPIA [None]
  - VERTIGO [None]
  - MUSCLE SPASMS [None]
  - BLOOD PRESSURE INCREASED [None]
